FAERS Safety Report 12134275 (Version 1)
Quarter: 2016Q1

REPORT INFORMATION
  Report Type: Spontaneous
  Country: NO (occurrence: NO)
  Receive Date: 20160301
  Receipt Date: 20160301
  Transmission Date: 20160526
  Serious: Yes (Other)
  Sender: FDA-Public Use
  Company Number: NO-GLAXOSMITHKLINE-NO2016025132

PATIENT
  Sex: Male

DRUGS (5)
  1. NOVORAPID [Concomitant]
     Active Substance: INSULIN ASPART
  2. INSULATARD FLEXPEN [Concomitant]
     Active Substance: INSULIN HUMAN
     Route: 051
  3. REQUIP [Suspect]
     Active Substance: ROPINIROLE HYDROCHLORIDE
     Indication: PARKINSONISM
     Dosage: 20 MG, QD
     Route: 048
     Dates: start: 2011, end: 201511
  4. AZILECT [Suspect]
     Active Substance: RASAGILINE MESYLATE
     Indication: PARKINSONISM
     Dosage: 1 MG, QD
     Route: 048
  5. STALEVO [Suspect]
     Active Substance: CARBIDOPA\ENTACAPONE\LEVODOPA
     Indication: PARKINSONISM
     Dosage: 100/25/200 - 7-9 TABLETS A DAY
     Route: 048
     Dates: start: 2011, end: 2015

REACTIONS (2)
  - Economic problem [Unknown]
  - Impulse-control disorder [Unknown]

NARRATIVE: CASE EVENT DATE: 2012
